FAERS Safety Report 7571670-4 (Version None)
Quarter: 2011Q2

REPORT INFORMATION
  Report Type: 
  Country: None (occurrence: None)
  Receive Date: 20110624
  Receipt Date: 20110615
  Transmission Date: 20111010
  Serious: Yes (Hospitalization, Other)
  Sender: FDA-Public Use
  Company Number: AU-MERCK-1105USA00357

PATIENT
  Age: 75 Year
  Sex: Male
  Weight: 87 kg

DRUGS (11)
  1. ATACAND [Concomitant]
     Route: 048
  2. JANUMET [Suspect]
     Indication: TYPE 2 DIABETES MELLITUS
     Route: 048
     Dates: start: 20110323, end: 20110418
  3. ZETIA [Concomitant]
     Route: 048
  4. METFORMIN HCL [Concomitant]
     Dosage: WITH FOOD
     Route: 048
  5. LIPITOR [Concomitant]
     Route: 048
  6. ACIMAX [Concomitant]
     Route: 048
  7. PANADOL OSTEO [Concomitant]
     Dosage: 2 TABLETS T.I.D
     Route: 065
  8. VYTORIN [Concomitant]
     Route: 048
  9. AMLO [Concomitant]
     Route: 065
  10. GLICLAZIDE [Concomitant]
     Dosage: AFTER MEALS
     Route: 048
  11. ASPIRIN [Concomitant]
     Dosage: WITH FOOD
     Route: 048

REACTIONS (11)
  - RALES [None]
  - PANCREATITIS ACUTE [None]
  - BACK PAIN [None]
  - TRANSIENT ISCHAEMIC ATTACK [None]
  - PNEUMONIA [None]
  - DRUG INEFFECTIVE [None]
  - ESCHERICHIA TEST POSITIVE [None]
  - DIARRHOEA [None]
  - HYPERSENSITIVITY [None]
  - ABDOMINAL PAIN UPPER [None]
  - WEIGHT LOSS DIET [None]
